FAERS Safety Report 6121812-2 (Version None)
Quarter: 2009Q1

REPORT INFORMATION
  Report Type: 
  Country: None (occurrence: None)
  Receive Date: 20090313
  Receipt Date: 20090313
  Transmission Date: 20090719
  Serious: Yes (Hospitalization)
  Sender: FDA-Public Use
  Company Number: None

PATIENT
  Sex: Male
  Weight: 105.6 kg

DRUGS (3)
  1. FLUOROURACIL [Suspect]
     Dosage: 5570 MG
     Dates: end: 20080423
  2. LEUCOVORIN CALCIUM [Suspect]
     Dosage: 960 MG
     Dates: end: 20080423
  3. ELOXATIN [Suspect]
     Dosage: 156 MG
     Dates: end: 20080423

REACTIONS (4)
  - ASTHENIA [None]
  - DEHYDRATION [None]
  - PYREXIA [None]
  - WEIGHT DECREASED [None]
